FAERS Safety Report 17655223 (Version 1)
Quarter: 2020Q2

REPORT INFORMATION
  Report Type: Spontaneous
  Country: US (occurrence: US)
  Receive Date: 20200409
  Receipt Date: 20200409
  Transmission Date: 20200713
  Serious: No
  Sender: FDA-Public Use
  Company Number: None

PATIENT
  Age: 72 Year
  Sex: Female

DRUGS (2)
  1. VANCOMYCIN [Suspect]
     Active Substance: VANCOMYCIN
     Indication: PNEUMONIA
     Route: 042
     Dates: start: 20200309, end: 20200309
  2. PIPERACILLIN/TAZOBACTAM [Suspect]
     Active Substance: PIPERACILLIN SODIUM\TAZOBACTAM SODIUM
     Indication: PNEUMONIA
     Dosage: ?
     Route: 041
     Dates: start: 20200309, end: 20200309

REACTIONS (6)
  - Stridor [None]
  - Erythema [None]
  - Swelling face [None]
  - Speech disorder [None]
  - Lip swelling [None]
  - Pruritus [None]

NARRATIVE: CASE EVENT DATE: 20200309
